FAERS Safety Report 14182876 (Version 6)
Quarter: 2018Q1

REPORT INFORMATION
  Report Type: Spontaneous
  Country: US (occurrence: US)
  Receive Date: 20171113
  Receipt Date: 20180228
  Transmission Date: 20180508
  Serious: Yes (Hospitalization, Other)
  Sender: FDA-Public Use
  Company Number: US-GLAXOSMITHKLINE-US2017GSK172307

PATIENT
  Age: 70 Year
  Sex: Female

DRUGS (7)
  1. FLOLAN [Suspect]
     Active Substance: EPOPROSTENOL SODIUM
     Dosage: 17 NG/KG/MIN, CO
     Route: 042
  2. FLOLAN [Suspect]
     Active Substance: EPOPROSTENOL SODIUM
     Dosage: UNK
     Route: 042
  3. FLOLAN [Suspect]
     Active Substance: EPOPROSTENOL SODIUM
     Dosage: 17 NG/KG/MIN, CO
     Route: 042
  4. DILTIAZEM. [Concomitant]
     Active Substance: DILTIAZEM
  5. FLOLAN [Suspect]
     Active Substance: EPOPROSTENOL SODIUM
     Indication: PULMONARY ARTERIAL HYPERTENSION
     Dosage: UNK
     Route: 042
     Dates: start: 20170201
  6. FLOLAN [Suspect]
     Active Substance: EPOPROSTENOL SODIUM
     Indication: PULMONARY ARTERIAL HYPERTENSION
     Dosage: 17 NG/KG/MIN, CO
     Route: 042
     Dates: start: 20070131
  7. FLOLAN [Suspect]
     Active Substance: EPOPROSTENOL SODIUM
     Dosage: UNK

REACTIONS (8)
  - Catheter site erythema [Unknown]
  - Pneumonia [Unknown]
  - Catheter site discharge [Unknown]
  - Catheter site infection [Recovering/Resolving]
  - Gallbladder operation [Unknown]
  - Dyspnoea [Unknown]
  - Contusion [Unknown]
  - Catheter site pain [Unknown]

NARRATIVE: CASE EVENT DATE: 20180217
